FAERS Safety Report 24618330 (Version 1)
Quarter: 2024Q4

REPORT INFORMATION
  Report Type: Spontaneous
  Country: QA (occurrence: QA)
  Receive Date: 20241114
  Receipt Date: 20241114
  Transmission Date: 20250115
  Serious: Yes (Hospitalization)
  Sender: OXFORD PHARMACEUTICALS, LLC
  Company Number: QA-Oxford Pharmaceuticals, LLC-2165026

PATIENT
  Age: 75 Year
  Sex: Female

DRUGS (1)
  1. TIZANIDINE HYDROCHLORIDE [Suspect]
     Active Substance: TIZANIDINE HYDROCHLORIDE
     Indication: Pain in extremity

REACTIONS (4)
  - Bradycardia [Unknown]
  - Intentional overdose [Unknown]
  - Mental status changes [Unknown]
  - Hypotension [Unknown]
